FAERS Safety Report 25920867 (Version 4)
Quarter: 2025Q4

REPORT INFORMATION
  Report Type: Report from Study
  Country: CA (occurrence: CA)
  Receive Date: 20251014
  Receipt Date: 20251023
  Transmission Date: 20260118
  Serious: Yes (Hospitalization)
  Sender: ABBVIE
  Company Number: CA-ABBVIE-6497797

PATIENT
  Age: 76 Year
  Sex: Male

DRUGS (3)
  1. CARBIDOPA\LEVODOPA [Suspect]
     Active Substance: CARBIDOPA\LEVODOPA
     Indication: Parkinson^s disease
     Dosage: DUODOPA-LEVODOPA20MG/ML, CARBIDOPAMONOHYDRATE5MG/ML, ROUTE- INTESTINAL INFUSION
     Route: 050
     Dates: start: 20190509
  2. CARBIDOPA\LEVODOPA [Suspect]
     Active Substance: CARBIDOPA\LEVODOPA
     Dosage: DUODOPA-LEVODOPA20MG/ML, CARBIDOPAMONOHYDRATE5MG/ML, ROUTE- INTESTINAL INFUSION
     Route: 050
     Dates: start: 20250909
  3. CORTISONE [Concomitant]
     Active Substance: CORTISONE
     Indication: Product used for unknown indication

REACTIONS (7)
  - Rehabilitation therapy [Unknown]
  - Joint swelling [Unknown]
  - Fall [Unknown]
  - Parkinson^s disease [Unknown]
  - Arthropathy [Unknown]
  - Stoma site discharge [Not Recovered/Not Resolved]
  - Dyskinesia [Not Recovered/Not Resolved]

NARRATIVE: CASE EVENT DATE: 20250101
